FAERS Safety Report 14905488 (Version 1)
Quarter: 2018Q2

REPORT INFORMATION
  Report Type: Spontaneous
  Country: FR (occurrence: FR)
  Receive Date: 20180517
  Receipt Date: 20180517
  Transmission Date: 20180711
  Serious: Yes (Other)
  Sender: FDA-Public Use
  Company Number: FR-MERCK KGAA-2047959

PATIENT
  Age: 27 Year
  Sex: Female

DRUGS (1)
  1. NOVOTHYROX [Suspect]
     Active Substance: LEVOTHYROXINE SODIUM
     Indication: POST PROCEDURAL HYPOTHYROIDISM

REACTIONS (30)
  - Fluid retention [Recovering/Resolving]
  - Personal relationship issue [Recovering/Resolving]
  - Disturbance in attention [Recovering/Resolving]
  - Asthenia [Recovered/Resolved]
  - Major depression [Recovering/Resolving]
  - Anxiety [Recovering/Resolving]
  - Weight increased [Recovering/Resolving]
  - Blood thyroid stimulating hormone decreased [Recovering/Resolving]
  - Mental impairment [Recovering/Resolving]
  - Hepatocellular injury [Recovering/Resolving]
  - Myalgia [Recovering/Resolving]
  - Skin disorder [Recovering/Resolving]
  - Blood uric acid increased [Recovering/Resolving]
  - Impaired work ability [Recovering/Resolving]
  - Intestinal transit time decreased [Recovered/Resolved]
  - Social avoidant behaviour [Recovering/Resolving]
  - Fatigue [Recovering/Resolving]
  - Libido disorder [Recovering/Resolving]
  - Presyncope [Recovering/Resolving]
  - Loss of personal independence in daily activities [Recovering/Resolving]
  - Blood creatine phosphokinase increased [Recovering/Resolving]
  - Swelling [Recovering/Resolving]
  - Hypotension [Recovered/Resolved]
  - Dyspnoea [Recovering/Resolving]
  - Stress [Recovering/Resolving]
  - Mental fatigue [Recovering/Resolving]
  - Somnolence [Recovering/Resolving]
  - Sleep disorder [Recovering/Resolving]
  - Emotional distress [Recovering/Resolving]
  - Alopecia [Recovering/Resolving]

NARRATIVE: CASE EVENT DATE: 2017
